FAERS Safety Report 6661965-0 (Version None)
Quarter: 2010Q1

REPORT INFORMATION
  Report Type: 
  Country: None (occurrence: None)
  Receive Date: 20100331
  Receipt Date: 20091113
  Transmission Date: 20100710
  Serious: Yes (Other)
  Sender: FDA-Public Use
  Company Number: US-BRISTOL-MYERS SQUIBB COMPANY-14843726

PATIENT
  Age: 86 Year
  Sex: Male

DRUGS (13)
  1. ERBITUX [Suspect]
     Indication: COLORECTAL CANCER
     Route: 042
     Dates: start: 20080812, end: 20080812
  2. DEXTROSE 5% [Concomitant]
     Route: 042
     Dates: start: 20080812, end: 20080812
  3. ATIVAN [Concomitant]
     Route: 042
     Dates: start: 20080812, end: 20080812
  4. DECADRON [Concomitant]
     Route: 042
     Dates: start: 20080812, end: 20080812
  5. ALOXI [Concomitant]
     Route: 042
     Dates: start: 20080812, end: 20080812
  6. MAGNESIUM SULFATE [Concomitant]
     Route: 042
     Dates: start: 20080812, end: 20080812
  7. CALCIUM GLUCONATE [Concomitant]
     Route: 042
     Dates: start: 20080812, end: 20080812
  8. LEUCOVORIN CALCIUM [Concomitant]
     Route: 042
     Dates: start: 20080812, end: 20080812
  9. OXALIPLATIN [Concomitant]
     Route: 042
     Dates: start: 20090812, end: 20090812
  10. TYLENOL-500 [Concomitant]
     Route: 048
     Dates: start: 20080812, end: 20080812
  11. BENADRYL [Concomitant]
     Route: 048
     Dates: start: 20080812, end: 20080812
  12. FLUOROURACIL [Concomitant]
     Route: 042
     Dates: start: 20080812, end: 20080812
  13. NORMAL SALINE [Concomitant]
     Route: 042
     Dates: start: 20080812, end: 20080812

REACTIONS (7)
  - CHEST PAIN [None]
  - COLD SWEAT [None]
  - DEPRESSED LEVEL OF CONSCIOUSNESS [None]
  - DYSPNOEA [None]
  - INCONTINENCE [None]
  - LETHARGY [None]
  - PO2 DECREASED [None]
